FAERS Safety Report 24686906 (Version 1)
Quarter: 2024Q4

REPORT INFORMATION
  Report Type: Spontaneous
  Country: CN (occurrence: CN)
  Receive Date: 20241202
  Receipt Date: 20241202
  Transmission Date: 20250114
  Serious: Yes (Hospitalization)
  Sender: SANDOZ
  Company Number: CN-SANDOZ-SDZ2024CN098580

PATIENT
  Age: 74 Year
  Sex: Male

DRUGS (7)
  1. CYCLOPHOSPHAMIDE [Suspect]
     Active Substance: CYCLOPHOSPHAMIDE
     Indication: Diffuse large B-cell lymphoma
     Dosage: 0.900 G, QD
     Route: 041
     Dates: start: 20241023, end: 20241024
  2. PREDNISONE [Suspect]
     Active Substance: PREDNISONE
     Indication: Diffuse large B-cell lymphoma
     Dosage: 30 MG, TID
     Route: 065
     Dates: start: 20241018
  3. RITUXIMAB [Suspect]
     Active Substance: RITUXIMAB
     Dosage: 0.1 G
     Route: 041
  4. RITUXIMAB [Suspect]
     Active Substance: RITUXIMAB
     Indication: Diffuse large B-cell lymphoma
     Dosage: 0.10 UNK,RITUXIMAB 0.5 D1? ON 10- 23,CHEMOTHERAPY WAS PERFORMED ON 10-24
     Route: 041
     Dates: start: 20241023, end: 20241024
  5. VINCRISTINE SULFATE [Suspect]
     Active Substance: VINCRISTINE SULFATE
     Indication: Diffuse large B-cell lymphoma
     Dosage: 2.00 G, QD
     Route: 041
     Dates: start: 20241023, end: 20241024
  6. EPIRUBICIN [Suspect]
     Active Substance: EPIRUBICIN
     Indication: Diffuse large B-cell lymphoma
     Dosage: 80 MG, QD
     Route: 041
     Dates: start: 20241023, end: 20241024
  7. SODIUM CHLORIDE [Concomitant]
     Active Substance: SODIUM CHLORIDE
     Indication: Diffuse large B-cell lymphoma
     Dosage: 100 ML, QD
     Route: 041
     Dates: start: 20241023, end: 20241024

REACTIONS (3)
  - Febrile neutropenia [Recovering/Resolving]
  - Granulocytopenia [Recovering/Resolving]
  - Leukopenia [Recovering/Resolving]

NARRATIVE: CASE EVENT DATE: 20241031
